FAERS Safety Report 16796962 (Version 2)
Quarter: 2019Q4

REPORT INFORMATION
  Report Type: Spontaneous
  Country: JP (occurrence: JP)
  Receive Date: 20190911
  Receipt Date: 20191101
  Transmission Date: 20200122
  Serious: Yes (Death, Hospitalization, Other)
  Sender: FDA-Public Use
  Company Number: JP-AMGEN-JPNSP2019148995

PATIENT
  Age: 73 Year
  Sex: Female
  Weight: 39 kg

DRUGS (5)
  1. XELODA [Concomitant]
     Active Substance: CAPECITABINE
     Indication: BREAST CANCER
     Dosage: 600 MILLIGRAM, BID
     Route: 048
     Dates: start: 20160525
  2. DENOTAS [Concomitant]
     Active Substance: CALCIUM CARBONATE\CHOLECALCIFEROL\MAGNESIUM CARBONATE
     Indication: HYPOCALCAEMIA
     Dosage: 2 DOSAGE FORM, QD
     Route: 048
     Dates: start: 20130930
  3. FEMARA [Concomitant]
     Active Substance: LETROZOLE
     Indication: BREAST CANCER
     Dosage: 2.5 MILLIGRAM, QD
     Route: 048
     Dates: start: 20100603, end: 201209
  4. RANMARK [Suspect]
     Active Substance: DENOSUMAB
     Indication: METASTASES TO BONE
     Dosage: 120 MILLIGRAM
     Route: 058
     Dates: start: 20121018
  5. ZOMETA [Suspect]
     Active Substance: ZOLEDRONIC ACID
     Indication: METASTASES TO BONE
     Dosage: 4 MILLIGRAM, QD
     Route: 042
     Dates: start: 20091004, end: 20120927

REACTIONS (4)
  - Osteonecrosis of jaw [Not Recovered/Not Resolved]
  - Death [Fatal]
  - Hypocalcaemia [Unknown]
  - Dermatomyositis [Unknown]

NARRATIVE: CASE EVENT DATE: 201507
